FAERS Safety Report 17777907 (Version 1)
Quarter: 2020Q2

REPORT INFORMATION
  Report Type: Spontaneous
  Country: US (occurrence: US)
  Receive Date: 20200513
  Receipt Date: 20200513
  Transmission Date: 20200714
  Serious: No
  Sender: FDA-Public Use
  Company Number: US-BIODELIVERY SCIENCES INTERNATIONAL-2020BDSI0151

PATIENT
  Sex: Male

DRUGS (3)
  1. BUPRENORPHINE. [Suspect]
     Active Substance: BUPRENORPHINE
     Indication: PAIN
     Route: 002
     Dates: start: 2019
  2. LATANOPROST. [Concomitant]
     Active Substance: LATANOPROST
     Indication: BORDERLINE GLAUCOMA
     Dosage: UNKNOWN, UNKNOWN
  3. NO DRUG NAME [Concomitant]
     Active Substance: UNSPECIFIED INGREDIENT
     Indication: BLOOD PRESSURE MEASUREMENT
     Dosage: UNKNOWN, UNKNOWN

REACTIONS (4)
  - Wrong technique in product usage process [Recovered/Resolved]
  - Ocular discomfort [Unknown]
  - Headache [Not Recovered/Not Resolved]
  - Oral administration complication [Unknown]

NARRATIVE: CASE EVENT DATE: 2019
